FAERS Safety Report 7177778-X (Version None)
Quarter: 2010Q4

REPORT INFORMATION
  Report Type: 
  Country: None (occurrence: None)
  Receive Date: 20101220
  Receipt Date: 20101213
  Transmission Date: 20110411
  Serious: Yes (Hospitalization)
  Sender: FDA-Public Use
  Company Number: US-B.I. PHARMACEUTICALS,INC./RIDGEFIELD-2010-BP-13169BP

PATIENT
  Age: 88 Year
  Sex: Male
  Weight: 67.59 kg

DRUGS (7)
  1. PRADAXA [Suspect]
     Indication: ATRIAL FIBRILLATION
     Dosage: 300 MG
     Route: 048
  2. ARICEPT [Concomitant]
     Dosage: 10 MG
  3. NAMENDA [Concomitant]
     Dosage: 20 MG
  4. AVODART [Concomitant]
     Dosage: 0.5 MG
  5. ACEBUTOLOL [Concomitant]
     Dosage: 1200 MG
  6. ISMO [Concomitant]
     Dosage: 10 MG
  7. LIPITOR [Concomitant]
     Dosage: 20 MG

REACTIONS (3)
  - CEREBRAL INFARCTION [None]
  - CEREBROVASCULAR ACCIDENT [None]
  - HEMIANOPIA [None]
